FAERS Safety Report 6292121-6 (Version None)
Quarter: 2009Q4

REPORT INFORMATION
  Report Type: 
  Country: None (occurrence: None)
  Receive Date: 20090730
  Receipt Date: 20090730
  Transmission Date: 20100525
  Serious: Yes (Other)
  Sender: FDA-Public Use
  Company Number: None

PATIENT
  Age: 58 Year
  Sex: Female

DRUGS (1)
  1. TEMODAR [Suspect]
     Dates: start: 20080307, end: 20080316

REACTIONS (10)
  - ALANINE AMINOTRANSFERASE INCREASED [None]
  - ASPARTATE AMINOTRANSFERASE INCREASED [None]
  - BLOOD ALKALINE PHOSPHATASE INCREASED [None]
  - CONVULSION [None]
  - HEPATOTOXICITY [None]
  - LIVER INJURY [None]
  - MALIGNANT NEOPLASM PROGRESSION [None]
  - MIXED OLIGO-ASTROCYTOMA [None]
  - NO THERAPEUTIC RESPONSE [None]
  - PULMONARY TOXICITY [None]
